FAERS Safety Report 5267560-2 (Version None)
Quarter: 2007Q1

REPORT INFORMATION
  Report Type: 
  Country: None (occurrence: None)
  Receive Date: 20070316
  Receipt Date: 20070309
  Transmission Date: 20070707
  Serious: Yes (Hospitalization, Other)
  Sender: FDA-Public Use
  Company Number: JP-BRISTOL-MYERS SQUIBB COMPANY-13662069

PATIENT
  Age: 68 Year
  Sex: Male

DRUGS (4)
  1. GATIFLO TABS 100 MG [Suspect]
     Indication: URINARY TRACT INFECTION
     Route: 048
     Dates: start: 20061127, end: 20061201
  2. SOLANTAL [Concomitant]
     Route: 048
     Dates: start: 20061127, end: 20061201
  3. FLIVAS [Concomitant]
     Route: 048
     Dates: start: 20061127, end: 20061201
  4. BRUFEN [Concomitant]
     Route: 048
     Dates: start: 20061127

REACTIONS (2)
  - HYPERGLYCAEMIA [None]
  - RENAL FAILURE [None]
